FAERS Safety Report 13011029 (Version 7)
Quarter: 2019Q3

REPORT INFORMATION
  Report Type: Report from Study
  Country: US (occurrence: US)
  Receive Date: 20161208
  Receipt Date: 20190808
  Transmission Date: 20191004
  Serious: Yes (Hospitalization)
  Sender: FDA-Public Use
  Company Number: US-ACTELION-A-US2016-146541

PATIENT
  Age: 68 Year
  Sex: Female
  Weight: 87.08 kg

DRUGS (12)
  1. SYNTHROID [Concomitant]
     Active Substance: LEVOTHYROXINE SODIUM
  2. TRACLEER [Suspect]
     Active Substance: BOSENTAN
     Dosage: UNK
     Route: 048
  3. TRACLEER [Suspect]
     Active Substance: BOSENTAN
     Indication: PULMONARY ARTERIAL HYPERTENSION
     Dosage: 125 MG, BID
     Route: 048
     Dates: start: 20081222
  4. BUDESONIDE. [Concomitant]
     Active Substance: BUDESONIDE
  5. VITAMIN B6 [Concomitant]
     Active Substance: PYRIDOXINE HYDROCHLORIDE
  6. ELIQUIS [Concomitant]
     Active Substance: APIXABAN
  7. FUROSEMIDE. [Concomitant]
     Active Substance: FUROSEMIDE
  8. PANTOPRAZOLE [Concomitant]
     Active Substance: PANTOPRAZOLE
  9. PREDNISONE. [Concomitant]
     Active Substance: PREDNISONE
  10. TRACLEER [Suspect]
     Active Substance: BOSENTAN
     Dosage: 125 MG, BID
     Route: 048
     Dates: start: 20140519
  11. REVATIO [Concomitant]
     Active Substance: SILDENAFIL CITRATE
  12. TOPIRAMATE. [Concomitant]
     Active Substance: TOPIRAMATE

REACTIONS (19)
  - Peripheral swelling [Unknown]
  - Bronchitis [Unknown]
  - Nasopharyngitis [Unknown]
  - Product dose omission [Unknown]
  - Fall [Unknown]
  - Foot fracture [Unknown]
  - Chronic obstructive pulmonary disease [Unknown]
  - Nerve injury [Unknown]
  - Spinal compression fracture [Recovering/Resolving]
  - Cardiac discomfort [Unknown]
  - Wound [Unknown]
  - Chest pain [Recovering/Resolving]
  - Pneumonia [Unknown]
  - Back pain [Recovering/Resolving]
  - Acute respiratory failure [Unknown]
  - Neuralgia [Not Recovered/Not Resolved]
  - Ligament sprain [Unknown]
  - Abdominal distension [Unknown]
  - Cardiac failure [Unknown]

NARRATIVE: CASE EVENT DATE: 201608
